FAERS Safety Report 21162056 (Version 2)
Quarter: 2022Q3

REPORT INFORMATION
  Report Type: Spontaneous
  Country: US (occurrence: None)
  Receive Date: 20220802
  Receipt Date: 20220828
  Transmission Date: 20221027
  Serious: Yes (Other)
  Sender: FDA-Public Use
  Company Number: US-ROCHE-3150239

PATIENT
  Sex: Female

DRUGS (3)
  1. XOLAIR [Suspect]
     Active Substance: OMALIZUMAB
     Indication: Urticaria
     Dosage: STRENGTH: 150MG/ML?LAST FILL WAS ON 08-AUG-2022
     Route: 058
     Dates: start: 20220711
  2. XOLAIR [Suspect]
     Active Substance: OMALIZUMAB
  3. XOLAIR [Suspect]
     Active Substance: OMALIZUMAB

REACTIONS (6)
  - Hypersensitivity [Unknown]
  - Anxiety [Unknown]
  - Anaphylactic reaction [Unknown]
  - Swelling face [Unknown]
  - Swelling of eyelid [Unknown]
  - Off label use [Unknown]
